FAERS Safety Report 19685315 (Version 1)
Quarter: 2021Q3

REPORT INFORMATION
  Report Type: Spontaneous
  Country: IE (occurrence: IE)
  Receive Date: 20210811
  Receipt Date: 20210811
  Transmission Date: 20211014
  Serious: Yes (Other)
  Sender: FDA-Public Use
  Company Number: IE-PFIZER INC-202100960213

PATIENT
  Age: 75 Year
  Sex: Female
  Weight: 57.2 kg

DRUGS (4)
  1. COMIRNATY [Suspect]
     Active Substance: TOZINAMERAN
     Indication: COVID-19 IMMUNISATION
     Dosage: DOSE 1, SINGLE
     Dates: start: 20210310, end: 20210310
  2. ATENOLOL. [Suspect]
     Active Substance: ATENOLOL
     Dosage: 25 MG
     Route: 065
  3. VALOID [CYCLIZINE HYDROCHLORIDE] [Suspect]
     Active Substance: CYCLIZINE HYDROCHLORIDE
     Dosage: 50 MG
     Route: 045
  4. PANTOPRAZOLE [Suspect]
     Active Substance: PANTOPRAZOLE
     Dosage: 40 MG
     Route: 065

REACTIONS (3)
  - Rash [Not Recovered/Not Resolved]
  - Discomfort [Not Recovered/Not Resolved]
  - Pain [Not Recovered/Not Resolved]

NARRATIVE: CASE EVENT DATE: 20210405
